FAERS Safety Report 8110799-9 (Version None)
Quarter: 2012Q1

REPORT INFORMATION
  Report Type: 
  Country: None (occurrence: None)
  Receive Date: 20120203
  Receipt Date: 20120123
  Transmission Date: 20120608
  Serious: Yes (Other)
  Sender: FDA-Public Use
  Company Number: CA-JNJFOC-20120200562

PATIENT
  Sex: Female
  Weight: 75 kg

DRUGS (7)
  1. VITAMIN [Concomitant]
     Route: 048
  2. HYDROCORTISONE [Concomitant]
     Indication: PREMEDICATION
     Route: 042
  3. BENADRYL [Concomitant]
     Indication: PREMEDICATION
     Route: 042
  4. CITALOPRAM HYDROBROMIDE [Concomitant]
     Route: 048
  5. ACETAMINOPHEN [Concomitant]
     Indication: PREMEDICATION
     Route: 048
  6. REMICADE [Suspect]
     Indication: COLITIS ULCERATIVE
     Route: 042
     Dates: start: 20091113
  7. ELAVIL [Concomitant]
     Route: 048

REACTIONS (3)
  - INFUSION RELATED REACTION [None]
  - NEPHROLITHIASIS [None]
  - PRURITUS [None]
